FAERS Safety Report 10143812 (Version 1)
Quarter: 2014Q2

REPORT INFORMATION
  Report Type: Spontaneous
  Country: FR (occurrence: FR)
  Receive Date: 20140430
  Receipt Date: 20140430
  Transmission Date: 20141212
  Serious: Yes (Life-Threatening, Other)
  Sender: FDA-Public Use
  Company Number: FR-GLAXOSMITHKLINE-B0988163A

PATIENT
  Age: 73 Year
  Sex: Female

DRUGS (14)
  1. ZOPHREN [Suspect]
     Indication: PROPHYLAXIS OF NAUSEA AND VOMITING
     Route: 065
     Dates: start: 20130726
  2. AVASTIN (BEVACIZUMAB) [Suspect]
     Indication: OVARIAN EPITHELIAL CANCER
     Dosage: 25MGML UNKNOWN
     Route: 042
     Dates: start: 20130726, end: 20131126
  3. CAELYX [Suspect]
     Indication: OVARIAN EPITHELIAL CANCER
     Dosage: 2MGML UNKNOWN
     Route: 042
     Dates: start: 20130726
  4. SOLUMEDROL [Suspect]
     Indication: OVARIAN EPITHELIAL CANCER
     Route: 042
     Dates: start: 20130726
  5. LAMALINE [Suspect]
     Indication: PAIN
     Route: 048
     Dates: start: 20131016, end: 20140328
  6. COVERSYL [Concomitant]
     Indication: HYPERTENSION
     Dosage: 4MG PER DAY
     Route: 065
  7. XANAX [Concomitant]
     Dosage: .25MG TWICE PER DAY
     Route: 065
  8. LASILIX [Concomitant]
     Indication: HYPERTENSION
     Dosage: 40MG PER DAY
     Route: 065
  9. INEXIUM [Concomitant]
     Dosage: 40MG PER DAY
     Route: 065
  10. BECILAN [Concomitant]
     Dosage: 250MG PER DAY
     Route: 065
  11. SOLUPRED [Concomitant]
     Route: 065
  12. VOGALENE [Concomitant]
     Route: 065
  13. COVERAM [Concomitant]
     Indication: HYPERTENSION
     Route: 065
  14. AMLOR [Concomitant]
     Indication: HYPERTENSION
     Route: 065

REACTIONS (4)
  - Headache [Not Recovered/Not Resolved]
  - Photophobia [Not Recovered/Not Resolved]
  - Phonophobia [Not Recovered/Not Resolved]
  - Dyspepsia [Not Recovered/Not Resolved]
